FAERS Safety Report 9159438 (Version 1)
Quarter: 2013Q1

REPORT INFORMATION
  Report Type: Spontaneous
  Country: US (occurrence: None)
  Receive Date: 20130312
  Receipt Date: 20130312
  Transmission Date: 20140127
  Serious: Yes (Other)
  Sender: FDA-Public Use
  Company Number: None

PATIENT
  Age: 41 Year
  Sex: Female
  Weight: 97.52 kg

DRUGS (1)
  1. NASONEX [Suspect]
     Indication: HYPERSENSITIVITY
     Dosage: ONE SQUIRT 2X DAILY NASAL
     Route: 045
     Dates: start: 20130211, end: 20130307

REACTIONS (6)
  - Pharyngeal oedema [None]
  - Choking [None]
  - Dyspnoea [None]
  - Conjunctivitis [None]
  - Upper respiratory tract infection [None]
  - Cough [None]
